FAERS Safety Report 7110738-3 (Version None)
Quarter: 2010Q4

REPORT INFORMATION
  Report Type: 
  Country: None (occurrence: None)
  Receive Date: 20101118
  Receipt Date: 20101111
  Transmission Date: 20110411
  Serious: Yes (Hospitalization, Congenital Anomaly)
  Sender: FDA-Public Use
  Company Number: A0893067A

PATIENT
  Sex: Male
  Weight: 2.5 kg

DRUGS (1)
  1. PAXIL [Suspect]

REACTIONS (10)
  - ATRIAL SEPTAL DEFECT [None]
  - CONGENITAL MITRAL VALVE INCOMPETENCE [None]
  - CONGENITAL TRICUSPID VALVE ATRESIA [None]
  - DRUG EXPOSURE DURING PREGNANCY [None]
  - HEART DISEASE CONGENITAL [None]
  - PATENT DUCTUS ARTERIOSUS [None]
  - PULMONARY ARTERY STENOSIS CONGENITAL [None]
  - TRANSPOSITION OF THE GREAT VESSELS [None]
  - UNIVENTRICULAR HEART [None]
  - VENTRICULAR SEPTAL DEFECT [None]
